FAERS Safety Report 6558045-1 (Version None)
Quarter: 2010Q1

REPORT INFORMATION
  Report Type: 
  Country: None (occurrence: None)
  Receive Date: 20100129
  Receipt Date: 20091219
  Transmission Date: 20100710
  Serious: No
  Sender: FDA-Public Use
  Company Number: US-BRACCO-003955

PATIENT
  Sex: Female

DRUGS (3)
  1. MULTIHANCE [Suspect]
     Indication: NUCLEAR MAGNETIC RESONANCE IMAGING
     Route: 042
     Dates: start: 20091125, end: 20091125
  2. ANTIHYPERTENSIVES [Concomitant]
  3. BENADRYL [Concomitant]
     Route: 065
     Dates: start: 20091125, end: 20091125

REACTIONS (2)
  - DYSGEUSIA [None]
  - URTICARIA [None]
